FAERS Safety Report 4910921-9 (Version None)
Quarter: 2006Q1

REPORT INFORMATION
  Report Type: 
  Country: None (occurrence: None)
  Receive Date: 20060214
  Receipt Date: 20060130
  Transmission Date: 20060701
  Serious: Yes (Other)
  Sender: FDA-Public Use
  Company Number: BE-ROCHE-434306

PATIENT
  Sex: Male
  Weight: 65 kg

DRUGS (2)
  1. ROACCUTANE [Suspect]
     Indication: DRUG USE FOR UNKNOWN INDICATION
     Dosage: STOPPED IN DECEMBER 2005.
     Route: 048
     Dates: start: 20051218
  2. ROACCUTANE [Suspect]
     Route: 048
     Dates: start: 20051215

REACTIONS (3)
  - AMNESIA [None]
  - DISTURBANCE IN ATTENTION [None]
  - HEAD DISCOMFORT [None]
